FAERS Safety Report 17911400 (Version 1)
Quarter: 2020Q2

REPORT INFORMATION
  Report Type: Spontaneous
  Country: US (occurrence: US)
  Receive Date: 20200617
  Receipt Date: 20200617
  Transmission Date: 20200714
  Serious: No
  Sender: FDA-Public Use
  Company Number: None

PATIENT
  Age: 25 Year
  Sex: Male
  Weight: 84.6 kg

DRUGS (2)
  1. ESCITALOPRAM (GENERIC FOR LEXAPRO) [Suspect]
     Active Substance: ESCITALOPRAM OXALATE
     Indication: ANXIETY
     Dosage: ?          QUANTITY:1 TABLET(S);?
     Route: 048
     Dates: start: 20200614, end: 20200615
  2. ESCITALOPRAM (GENERIC FOR LEXAPRO) [Suspect]
     Active Substance: ESCITALOPRAM OXALATE
     Indication: DEPRESSION
     Dosage: ?          QUANTITY:1 TABLET(S);?
     Route: 048
     Dates: start: 20200614, end: 20200615

REACTIONS (6)
  - Headache [None]
  - Dry mouth [None]
  - Anxiety [None]
  - Diarrhoea [None]
  - Muscle twitching [None]
  - Mydriasis [None]

NARRATIVE: CASE EVENT DATE: 20200615
